FAERS Safety Report 9313129 (Version 1)
Quarter: 2013Q2

REPORT INFORMATION
  Report Type: Spontaneous
  Country: US (occurrence: US)
  Receive Date: 20130528
  Receipt Date: 20130528
  Transmission Date: 20140414
  Serious: No
  Sender: FDA-Public Use
  Company Number: US-ABBOTT-13P-163-1060585-00

PATIENT
  Age: 85 Year
  Sex: Male
  Weight: 77.18 kg

DRUGS (7)
  1. ANDROGEL 1.62% [Suspect]
     Indication: BLOOD TESTOSTERONE DECREASED
     Dosage: 4 PUMP ACTUATIONS
     Dates: start: 201301, end: 2013
  2. ANDROGEL 1% [Suspect]
     Dosage: FOUR PUMP ACTUATIONS PER DAY
  3. LEVOTHYROXINE [Concomitant]
     Indication: HYPOTHYROIDISM
  4. SIMVASTATIN [Concomitant]
     Indication: PRODUCT USED FOR UNKNOWN INDICATION
  5. CO Q 10 [Concomitant]
     Indication: PRODUCT USED FOR UNKNOWN INDICATION
  6. ENALAPRIL [Concomitant]
     Indication: RENAL DISORDER
  7. DILTIAZEM [Concomitant]
     Indication: HYPERTENSION

REACTIONS (1)
  - Drug dispensing error [Unknown]
